FAERS Safety Report 20057174 (Version 1)
Quarter: 2021Q4

REPORT INFORMATION
  Report Type: Spontaneous
  Country: HU (occurrence: HU)
  Receive Date: 20211111
  Receipt Date: 20211111
  Transmission Date: 20220304
  Serious: Yes (Death, Life-Threatening, Hospitalization, Other)
  Sender: FDA-Public Use
  Company Number: HU-ABBVIE-21K-076-4156380-00

PATIENT
  Age: 40 Year
  Sex: Male

DRUGS (2)
  1. VALPROATE [Suspect]
     Active Substance: VALPROIC ACID
     Indication: Generalised onset non-motor seizure
     Route: 065
  2. LEVETIRACETAM [Suspect]
     Active Substance: LEVETIRACETAM
     Indication: Generalised onset non-motor seizure
     Route: 065

REACTIONS (9)
  - Hyperammonaemia [Fatal]
  - Hyperammonaemic encephalopathy [Fatal]
  - Diabetes insipidus [Fatal]
  - Cerebral circulatory failure [Fatal]
  - Lactic acidosis [Fatal]
  - Hypercapnia [Fatal]
  - Hyperkalaemia [Fatal]
  - Clonic convulsion [Fatal]
  - Brain oedema [Fatal]
